FAERS Safety Report 4543087-8 (Version None)
Quarter: 2004Q4

REPORT INFORMATION
  Report Type: 
  Country: None (occurrence: None)
  Receive Date: 20041229
  Receipt Date: 20041214
  Transmission Date: 20050328
  Serious: Yes (Hospitalization)
  Sender: FDA-Public Use
  Company Number: CA_2004-034379

PATIENT
  Age: 65 Year
  Sex: Female

DRUGS (13)
  1. BETASERON [Suspect]
     Indication: RELAPSING-REMITTING MULTIPLE SCLEROSIS
     Dosage: 8 MIU, EVERY 2D , SUBCUTANEOUS
     Route: 058
     Dates: start: 20040618, end: 20041011
  2. CALCIUM (CALCIUM) [Concomitant]
  3. GABAPENTIN [Concomitant]
  4. RABEPRAZOLE SODIUM [Concomitant]
  5. ZESTORETIC [Concomitant]
  6. ADALAT [Concomitant]
  7. LISINOPRIL [Concomitant]
  8. DOCUSATE (DOCUSATE) [Concomitant]
  9. ASAPHEN (ACETYLSALICYLIC ACID0 [Concomitant]
  10. METOPROLOL TARTRATE [Concomitant]
  11. PREMARIN [Concomitant]
  12. AMITRIPTYLINE (AMITRIPTYLINE) [Concomitant]
  13. TEMAZEPAM [Concomitant]

REACTIONS (9)
  - CHEST PAIN [None]
  - DRUG ABUSER [None]
  - EYE IRRITATION [None]
  - FATIGUE [None]
  - HEADACHE [None]
  - INJECTION SITE DESQUAMATION [None]
  - MEDICATION ERROR [None]
  - NAUSEA [None]
  - VOMITING [None]
